FAERS Safety Report 20303159 (Version 1)
Quarter: 2022Q1

REPORT INFORMATION
  Report Type: Spontaneous
  Country: US (occurrence: US)
  Receive Date: 20220106
  Receipt Date: 20220106
  Transmission Date: 20220424
  Serious: No
  Sender: FDA-Public Use
  Company Number: US-KARYOPHARM-2021KPT001526

PATIENT

DRUGS (9)
  1. XPOVIO [Suspect]
     Active Substance: SELINEXOR
     Indication: Follicular lymphoma
     Dosage: 80 MG, WEEKLY
     Route: 048
     Dates: start: 20211122, end: 202112
  2. CEPHALEXIN [Concomitant]
     Active Substance: CEPHALEXIN
  3. GABAPENTIN [Concomitant]
     Active Substance: GABAPENTIN
  4. LATANOPROST [Concomitant]
     Active Substance: LATANOPROST
  5. MIDODRINE [Concomitant]
     Active Substance: MIDODRINE
  6. OMEPRAZOLE [Concomitant]
     Active Substance: OMEPRAZOLE
  7. ONDANSETRON [Concomitant]
     Active Substance: ONDANSETRON
  8. POTASSIUM CHLORIDE [Concomitant]
     Active Substance: POTASSIUM CHLORIDE
  9. PROCHLORPERAZINE [Concomitant]
     Active Substance: PROCHLORPERAZINE

REACTIONS (3)
  - Nausea [Unknown]
  - Vomiting [Unknown]
  - Asthenia [Unknown]

NARRATIVE: CASE EVENT DATE: 20211101
